FAERS Safety Report 7471006-3 (Version None)
Quarter: 2011Q2

REPORT INFORMATION
  Report Type: 
  Country: None (occurrence: None)
  Receive Date: 20110510
  Receipt Date: 20110504
  Transmission Date: 20111010
  Serious: No
  Sender: FDA-Public Use
  Company Number: US-PFIZER INC-2011096732

PATIENT
  Sex: Male
  Weight: 138 kg

DRUGS (1)
  1. DEPO-TESTOSTERONE [Suspect]
     Indication: KLINEFELTER'S SYNDROME
     Dosage: ONCE EVERY TWO WEEKS
     Route: 030
     Dates: start: 20030101

REACTIONS (1)
  - ANXIETY [None]
